FAERS Safety Report 6029312-5 (Version None)
Quarter: 2009Q1

REPORT INFORMATION
  Report Type: 
  Country: None (occurrence: None)
  Receive Date: 20090106
  Receipt Date: 20081229
  Transmission Date: 20090719
  Serious: Yes (Hospitalization)
  Sender: FDA-Public Use
  Company Number: US-ABBOTT-08P-163-0495062-00

PATIENT
  Sex: Male
  Weight: 86.26 kg

DRUGS (4)
  1. HUMIRA [Suspect]
     Indication: RHEUMATOID ARTHRITIS
     Route: 058
     Dates: start: 20080101, end: 20081216
  2. HUMIRA [Suspect]
     Indication: PSORIASIS
  3. HUMALOG 70/30 INSULIN [Concomitant]
     Indication: TYPE 1 DIABETES MELLITUS
  4. UNKNOWN BLOOD PRESSURE MEDICATION [Concomitant]
     Indication: HYPERTENSION

REACTIONS (1)
  - CEREBROVASCULAR ACCIDENT [None]
